FAERS Safety Report 4732036-5 (Version None)
Quarter: 2005Q3

REPORT INFORMATION
  Report Type: 
  Country: None (occurrence: None)
  Receive Date: 20050722
  Receipt Date: 20050330
  Transmission Date: 20060218
  Serious: Yes (Hospitalization, Disabling, Other)
  Sender: FDA-Public Use
  Company Number: 05-000215

PATIENT
  Sex: Female

DRUGS (48)
  1. ESTRACE [Suspect]
     Indication: HORMONE REPLACEMENT THERAPY
     Dosage: ORAL
     Route: 048
  2. FEMHRT [Suspect]
     Indication: HORMONE REPLACEMENT THERAPY
     Dosage: 5/1000 UG, ORAL
     Route: 048
  3. ESTROSTEP 21 [Suspect]
     Dosage: 20-30-35/1000 UG, ORAL
     Route: 048
  4. OVCON-35 [Suspect]
     Indication: HORMONE REPLACEMENT THERAPY
     Dosage: 35/400 UG, ORAL
     Route: 048
  5. PREMARIN [Suspect]
     Indication: HORMONE REPLACEMENT THERAPY
     Dosage: ORAL
     Route: 048
  6. MEDROXYPROGESTERONE ACETATE [Suspect]
     Indication: HORMONE REPLACEMENT THERAPY
     Dosage: ORAL
     Route: 048
  7. CENESTIN [Suspect]
     Indication: HORMONE REPLACEMENT THERAPY
  8. CLIMARA [Suspect]
     Indication: HORMONE REPLACEMENT THERAPY
  9. ALORA [Suspect]
     Indication: HORMONE REPLACEMENT THERAPY
  10. ESCLIM [Suspect]
     Indication: HORMONE REPLACEMENT THERAPY
  11. ESTINYL [Suspect]
     Indication: HORMONE REPLACEMENT THERAPY
  12. CYCLESSA [Suspect]
     Indication: HORMONE REPLACEMENT THERAPY
  13. MENEST [Suspect]
     Indication: HORMONE REPLACEMENT THERAPY
  14. OGEN [Suspect]
     Indication: HORMONE REPLACEMENT THERAPY
  15. DIENESTROL [Suspect]
     Indication: HORMONE REPLACEMENT THERAPY
  16. ORTHO-EST [Suspect]
     Indication: HORMONE REPLACEMENT THERAPY
  17. VAGIFEM [Suspect]
     Indication: HORMONE REPLACEMENT THERAPY
  18. VIVELLE [Suspect]
     Indication: HORMONE REPLACEMENT THERAPY
  19. YASMIN [Suspect]
     Indication: HORMONE REPLACEMENT THERAPY
  20. ACTIVELLA [Suspect]
     Indication: HORMONE REPLACEMENT THERAPY
  21. ALESSE [Suspect]
     Indication: HORMONE REPLACEMENT THERAPY
  22. BREVICON 21 [Suspect]
     Indication: HORMONE REPLACEMENT THERAPY
  23. COMBIPATCH [Suspect]
     Indication: HORMONE REPLACEMENT THERAPY
  24. DESOGEN [Suspect]
     Indication: HORMONE REPLACEMENT THERAPY
  25. LEVORA 0.15/30-21 [Suspect]
     Indication: HORMONE REPLACEMENT THERAPY
  26. LO/OVRAL [Suspect]
     Indication: HORMONE REPLACEMENT THERAPY
  27. MICROGESTIN FE 1/20 [Suspect]
     Indication: HORMONE REPLACEMENT THERAPY
  28. MIRCETTE(DESOGESTREL, ETHINYLESTRADIOL) [Suspect]
     Indication: HORMONE REPLACEMENT THERAPY
  29. MODICON [Suspect]
     Indication: HORMONE REPLACEMENT THERAPY
  30. NECON(NORETHISTERONE, ETHINYLESTRADIOL) [Suspect]
     Indication: HORMONE REPLACEMENT THERAPY
  31. NORDETTE-21 [Suspect]
     Indication: HORMONE REPLACEMENT THERAPY
  32. NORINYL [Suspect]
     Indication: HORMONE REPLACEMENT THERAPY
  33. OGESTREL() [Suspect]
     Indication: HORMONE REPLACEMENT THERAPY
  34. ORTHO-CEPT(ETHINYLESTRADIOL, DESOGESTREL) [Suspect]
     Indication: HORMONE REPLACEMENT THERAPY
  35. ORTHO-CYCLEN(ETHINYLESTRADIOL, NORGESTIMATE) [Suspect]
     Indication: HORMONE REPLACEMENT THERAPY
  36. ORTHO-NOVUM(MESTRANOL, NORETHISTERONE) [Suspect]
     Indication: HORMONE REPLACEMENT THERAPY
  37. ORTHO-PREFEST(NORGESTIMATE, ESTRADIOL) [Suspect]
     Indication: HORMONE REPLACEMENT THERAPY
  38. PREMPHASE (PREMARIN;CYCRIN 14/14) [Suspect]
     Indication: HORMONE REPLACEMENT THERAPY
  39. TRIVORA(ETHINYLESTRADIOL, LEVONORGESTREL) [Suspect]
     Indication: HORMONE REPLACEMENT THERAPY
  40. ZOVIA(ETYNODIOL DIACETATE, ETHINYLESTRADIOL) [Suspect]
     Indication: HORMONE REPLACEMENT THERAPY
  41. AYGESTIN [Suspect]
     Indication: HORMONE REPLACEMENT THERAPY
  42. CRINONE [Suspect]
     Indication: HORMONE REPLACEMENT THERAPY
  43. DEPO-PROVERA SUSPENSION/INJ [Suspect]
     Indication: HORMONE REPLACEMENT THERAPY
  44. MICRONOR [Suspect]
     Indication: HORMONE REPLACEMENT THERAPY
  45. MIRENA [Suspect]
     Indication: HORMONE REPLACEMENT THERAPY
  46. NOR-QD [Suspect]
     Indication: HORMONE REPLACEMENT THERAPY
  47. PROMETRIUM [Suspect]
     Indication: HORMONE REPLACEMENT THERAPY
  48. PROVERA [Suspect]
     Indication: HORMONE REPLACEMENT THERAPY

REACTIONS (1)
  - BREAST CANCER [None]
